FAERS Safety Report 24646719 (Version 3)
Quarter: 2024Q4

REPORT INFORMATION
  Report Type: Report from Study
  Country: GR (occurrence: GR)
  Receive Date: 20241121
  Receipt Date: 20241212
  Transmission Date: 20250114
  Serious: No
  Sender: AKCEA THERAPEUTICS
  Company Number: GR-AKCEA THERAPEUTICS, INC.-2024IS003257

PATIENT

DRUGS (10)
  1. TEGSEDI [Suspect]
     Active Substance: INOTERSEN SODIUM
     Indication: Hereditary neuropathic amyloidosis
     Dosage: 284 MILLIGRAM, QW
     Route: 058
  2. TEGSEDI [Suspect]
     Active Substance: INOTERSEN SODIUM
     Dosage: 284 MILLIGRAM, QW
     Route: 058
  3. TEGSEDI [Suspect]
     Active Substance: INOTERSEN SODIUM
     Dosage: 284 MILLIGRAM, QW
     Route: 058
  4. TEGSEDI [Suspect]
     Active Substance: INOTERSEN SODIUM
     Dosage: 284 MILLIGRAM, QW
     Route: 058
  5. TEGSEDI [Suspect]
     Active Substance: INOTERSEN SODIUM
     Dosage: 284 MILLIGRAM, QW (WEEKLY)
     Dates: start: 20230113
  6. PRADAXA [Concomitant]
     Active Substance: DABIGATRAN ETEXILATE MESYLATE
     Indication: Atrial fibrillation
     Dosage: 150 MILLIGRAM, BID, 1 TAB IN MORNING AND 1 TAB AT NIGHT
     Route: 048
     Dates: start: 202204
  7. LASIX [Concomitant]
     Active Substance: FUROSEMIDE
     Indication: Cardiac failure
     Dosage: 20 MILLIGRAM, BID
     Route: 065
     Dates: start: 2020
  8. VYNDAQEL [Concomitant]
     Active Substance: TAFAMIDIS MEGLUMINE
     Indication: Hereditary neuropathic amyloidosis
     Dosage: 60 MILLIGRAM, QD
     Route: 065
     Dates: start: 202206, end: 20230113
  9. VYNDAQEL [Concomitant]
     Active Substance: TAFAMIDIS MEGLUMINE
     Dosage: 20 MILLIGRAM, QD
     Dates: start: 202010
  10. AMIODARONE HYDROCHLORIDE [Concomitant]
     Active Substance: AMIODARONE HYDROCHLORIDE
     Indication: Arrhythmia
     Dosage: 200 MILLIGRAM, 1/2 X DAY
     Route: 065

REACTIONS (22)
  - Platelet count decreased [Unknown]
  - White blood cell count decreased [Recovered/Resolved]
  - Neutrophil percentage increased [Recovered/Resolved]
  - Mean platelet volume increased [Recovered/Resolved]
  - Mean platelet volume decreased [Recovered/Resolved]
  - Albumin urine present [Unknown]
  - Urine albumin/creatinine ratio increased [Unknown]
  - Haemoglobin decreased [Recovered/Resolved]
  - Lymphocyte count decreased [Unknown]
  - Haematocrit decreased [Recovered/Resolved]
  - Plateletcrit decreased [Unknown]
  - Platelet distribution width increased [Unknown]
  - Red blood cell count decreased [Unknown]
  - Eosinophil percentage increased [Recovered/Resolved]
  - Mean cell haemoglobin decreased [Unknown]
  - Monocyte count increased [Unknown]
  - Mean cell haemoglobin concentration decreased [Recovered/Resolved]
  - Urine protein/creatinine ratio increased [Unknown]
  - Glomerular filtration rate decreased [Recovered/Resolved]
  - Red cell distribution width increased [Recovered/Resolved]
  - Mononuclear cell count decreased [Unknown]
  - Basophil percentage increased [Unknown]

NARRATIVE: CASE EVENT DATE: 20230202
